FAERS Safety Report 23275559 (Version 1)
Quarter: 2023Q4

REPORT INFORMATION
  Report Type: Spontaneous
  Country: IT (occurrence: IT)
  Receive Date: 20231208
  Receipt Date: 20231208
  Transmission Date: 20240109
  Serious: Yes (Hospitalization)
  Sender: FDA-Public Use
  Company Number: None

PATIENT
  Age: 44 Year
  Sex: Female

DRUGS (5)
  1. IRBESARTAN [Suspect]
     Active Substance: IRBESARTAN
     Indication: Hypertension
     Dosage: 1 DF
     Route: 048
  2. ATENOLOL HYDROCHLORIDE [Suspect]
     Active Substance: ATENOLOL HYDROCHLORIDE
     Indication: Hypertension
     Dosage: 1 DF
     Route: 048
  3. CLOPIDOGREL [Suspect]
     Active Substance: CLOPIDOGREL BISULFATE
     Dosage: UNK
  4. OMEGA 3 PULSE [Concomitant]
     Dosage: UNK
  5. PANTOPRAZOLE SODIUM [Concomitant]
     Active Substance: PANTOPRAZOLE SODIUM
     Dosage: UNK

REACTIONS (5)
  - Heart rate increased [Recovering/Resolving]
  - Blood pressure increased [Recovering/Resolving]
  - Therapy non-responder [Unknown]
  - Headache [Recovering/Resolving]
  - Nausea [Recovering/Resolving]

NARRATIVE: CASE EVENT DATE: 20231118
